FAERS Safety Report 19161694 (Version 1)
Quarter: 2021Q2

REPORT INFORMATION
  Report Type: Spontaneous
  Country: US (occurrence: US)
  Receive Date: 20210420
  Receipt Date: 20210420
  Transmission Date: 20210717
  Serious: Yes (Other)
  Sender: FDA-Public Use
  Company Number: US-PURDUE-USA-2020-0193362

PATIENT
  Sex: Male

DRUGS (1)
  1. HYDROCODONE BITARTRATE AND ACETAMINOPHEN [Suspect]
     Active Substance: ACETAMINOPHEN\HYDROCODONE BITARTRATE
     Indication: BACK PAIN
     Dosage: UNKNOWN
     Route: 048
     Dates: start: 2004

REACTIONS (9)
  - Chills [Unknown]
  - Drug dependence [Unknown]
  - Illness [Unknown]
  - Abdominal pain upper [Unknown]
  - Liver disorder [None]
  - Insomnia [Unknown]
  - Hyperhidrosis [Unknown]
  - Dysgeusia [Unknown]
  - Constipation [Unknown]
